FAERS Safety Report 8032508-4 (Version None)
Quarter: 2011Q4

REPORT INFORMATION
  Report Type: 
  Country: None (occurrence: None)
  Receive Date: 20111223
  Receipt Date: 20111215
  Transmission Date: 20120403
  Serious: Yes (Disabling, Other)
  Sender: FDA-Public Use
  Company Number: ACO_21303_2010

PATIENT
  Age: 45 Year
  Sex: Female
  Weight: 59 kg

DRUGS (7)
  1. AMPYRA [Suspect]
     Indication: GAIT DISTURBANCE
     Dosage: 10 MG, BID, ORAL
     Route: 048
     Dates: start: 20100528, end: 20100628
  2. BACLOFEN [Concomitant]
  3. PROPRANOLOL [Concomitant]
  4. MOTRIN [Concomitant]
  5. REBIF [Concomitant]
  6. PROVIGIL [Concomitant]
  7. MICARDIS [Concomitant]

REACTIONS (14)
  - ACTIVITIES OF DAILY LIVING IMPAIRED [None]
  - HYPOAESTHESIA [None]
  - COORDINATION ABNORMAL [None]
  - URINARY RETENTION [None]
  - FALL [None]
  - IMPAIRED WORK ABILITY [None]
  - MULTIPLE SCLEROSIS RELAPSE [None]
  - GAIT DISTURBANCE [None]
  - BALANCE DISORDER [None]
  - MUSCULAR WEAKNESS [None]
  - FATIGUE [None]
  - OEDEMA PERIPHERAL [None]
  - DRUG INEFFECTIVE [None]
  - ABASIA [None]
